FAERS Safety Report 5786771-0 (Version None)
Quarter: 2008Q2

REPORT INFORMATION
  Report Type: 
  Country: None (occurrence: None)
  Receive Date: 20080618
  Receipt Date: 20080605
  Transmission Date: 20081010
  Serious: Yes (Hospitalization)
  Sender: FDA-Public Use
  Company Number: 2008US001439

PATIENT
  Age: 83 Year
  Sex: Male
  Weight: 44 kg

DRUGS (17)
  1. AMBISOME(AMBISOME) (AMPHOTERICIAN B) INJECTION [Suspect]
     Indication: FEBRILE NEUTROPENIA
     Dosage: 100 MG, UID/QD, IV NOS
     Route: 042
     Dates: start: 20080222, end: 20080306
  2. VANCOMYCIN HCL [Suspect]
     Indication: DRUG USE FOR UNKNOWN INDICATION
     Dosage: 1 G, UID/QD, IV NOS
     Route: 042
     Dates: end: 20080303
  3. CIPROFLOXACIN HCL [Suspect]
     Indication: DRUG USE FOR UNKNOWN INDICATION
     Dosage: 600 MG, UID/QD
     Dates: end: 20080303
  4. NEOPAREN [Concomitant]
  5. CANDESARTAN CILEXETIL [Concomitant]
  6. AMLODIPINE BESYLATE [Concomitant]
  7. OMEPRAL [Concomitant]
  8. DEPAS (ETIZOLAM) [Concomitant]
  9. ALLOPURINOL [Concomitant]
  10. MUCOSTA (REBAMIPIDE) [Concomitant]
  11. MAGMITT (MAGNESIUM OXIDE) [Concomitant]
  12. LOXONIN (LOXOPROFEN SODIUM) [Concomitant]
  13. PL [Concomitant]
  14. DASEN (SERRAPEPTASE) [Concomitant]
  15. HUSTAZOL (CLOPERASTINE HYDROCHLORIDE) [Concomitant]
  16. ITRIZOLE (ITRAZONAZOLE) [Concomitant]
  17. MAXIPIME (CEFEPIMDE HYDROCHLORIDE) [Concomitant]

REACTIONS (3)
  - FACE OEDEMA [None]
  - HERPES ZOSTER [None]
  - HYPOKALAEMIA [None]
